FAERS Safety Report 6944912-3 (Version None)
Quarter: 2010Q3

REPORT INFORMATION
  Report Type: 
  Country: None (occurrence: None)
  Receive Date: 20100827
  Receipt Date: 20100820
  Transmission Date: 20110219
  Serious: Yes (Other)
  Sender: FDA-Public Use
  Company Number: US-PFIZER INC-2010105374

PATIENT
  Sex: Male
  Weight: 80.726 kg

DRUGS (10)
  1. LIPITOR [Suspect]
     Indication: BLOOD CHOLESTEROL INCREASED
     Dosage: 10 MG, 1X/DAY
     Route: 048
     Dates: start: 20050101
  2. DIOVAN HCT [Concomitant]
     Indication: HYPERTENSION
     Dosage: 160/25 MG, 1X/DAY
     Route: 048
  3. SINGULAIR [Concomitant]
     Indication: ASTHMA
     Dosage: 10 MG, 1X/DAY
     Route: 048
  4. SINGULAIR [Concomitant]
     Indication: HYPERSENSITIVITY
  5. ATENOLOL [Concomitant]
     Indication: HYPERTENSION
     Dosage: 25 MG, 1X/DAY
     Route: 048
  6. NEXIUM [Concomitant]
     Indication: ABDOMINAL DISCOMFORT
     Dosage: 40 MG, 1X/DAY
     Route: 048
  7. NEXIUM [Concomitant]
     Indication: FLATULENCE
  8. NEXIUM [Concomitant]
     Indication: HYPERCHLORHYDRIA
  9. NEXIUM [Concomitant]
     Indication: GASTROOESOPHAGEAL REFLUX DISEASE
  10. LORAZEPAM [Concomitant]
     Dosage: 1 MG, 1X/DAY
     Route: 048

REACTIONS (1)
  - GOUT [None]
